FAERS Safety Report 15956087 (Version 1)
Quarter: 2019Q1

REPORT INFORMATION
  Report Type: Report from Study
  Country: US (occurrence: US)
  Receive Date: 20190213
  Receipt Date: 20190213
  Transmission Date: 20190417
  Serious: Yes (Other)
  Sender: FDA-Public Use
  Company Number: US-ROCHE-2265211

PATIENT
  Age: 48 Year
  Sex: Male
  Weight: 120.2 kg

DRUGS (1)
  1. RITUXIMAB. [Suspect]
     Active Substance: RITUXIMAB
     Indication: GRANULOMATOSIS WITH POLYANGIITIS
     Route: 042
     Dates: start: 20160314, end: 20160404

REACTIONS (1)
  - Follicular thyroid cancer [Unknown]

NARRATIVE: CASE EVENT DATE: 20160623
